FAERS Safety Report 17183580 (Version 2)
Quarter: 2019Q4

REPORT INFORMATION
  Report Type: Report from Study
  Country: US (occurrence: US)
  Receive Date: 20191220
  Receipt Date: 20191227
  Transmission Date: 20200122
  Serious: Yes (Hospitalization)
  Sender: FDA-Public Use
  Company Number: US-BAXTER-2019BAX025628

PATIENT
  Age: 3 Year
  Sex: Female
  Weight: 14.5 kg

DRUGS (23)
  1. DOXIL [Suspect]
     Active Substance: DOXORUBICIN HYDROCHLORIDE
     Dosage: LAST DOSE PRIOR TO THE SAE FEBRILE NEUTROPENIA (FIRST OCCURRENCE)
     Route: 042
     Dates: start: 20191022, end: 20191022
  2. THIOGUANINE [Suspect]
     Active Substance: THIOGUANINE
     Indication: B-CELL TYPE ACUTE LEUKAEMIA
     Dosage: FIRST DOSE
     Route: 048
     Dates: start: 20191112
  3. CYCLOPHOSPHAMIDE FOR INJECTION, USP [Suspect]
     Active Substance: CYCLOPHOSPHAMIDE
     Indication: B-CELL TYPE ACUTE LEUKAEMIA
     Dosage: FIRST DOSE
     Route: 042
     Dates: start: 20191112
  4. DEXAMETHASONE. [Suspect]
     Active Substance: DEXAMETHASONE
     Dosage: LAST DOSE PRIOR TO THE SAE FEBRILE NEUTROPENIA (FIRST OCCURRENCE)
     Route: 048
     Dates: start: 20191028, end: 20191028
  5. INCB18424 [Suspect]
     Active Substance: RUXOLITINIB
     Dosage: LAST DOSE PRIOR TO THE SAE FEBRILE NEUTROPENIA (FIRST OCCURRENCE)
     Route: 048
     Dates: start: 20191021, end: 20191021
  6. DEXAMETHASONE. [Suspect]
     Active Substance: DEXAMETHASONE
     Indication: B-CELL TYPE ACUTE LEUKAEMIA
     Dosage: FIRST DOSE
     Route: 048
     Dates: start: 20191008
  7. METHOTREXATE. [Suspect]
     Active Substance: METHOTREXATE
     Dosage: LAST DOSE PRIOR TO SAE FEBRILE NEUTROPENIA (SECOND OCCURRENCE)
     Route: 037
     Dates: start: 20191119, end: 20191119
  8. CYTARABINE. [Suspect]
     Active Substance: CYTARABINE
     Route: 058
     Dates: start: 20191112, end: 20191114
  9. VINCRISTINE [Suspect]
     Active Substance: VINCRISTINE
     Dosage: LAST DOSE PRIOR TO SAE FEBRILE NEUTROPENIA (SECOND OCCURRENCE)
     Route: 042
     Dates: start: 20191126, end: 20191126
  10. METHOTREXATE. [Suspect]
     Active Substance: METHOTREXATE
     Indication: B-CELL TYPE ACUTE LEUKAEMIA
     Dosage: FIRST DOSE AND LAST DOSE PRIOR TO SAE (FEBRILE NEUTROPENIA (FIRST OCCURRENCE))
     Route: 037
     Dates: start: 20191008, end: 20191008
  11. CYTARABINE. [Suspect]
     Active Substance: CYTARABINE
     Indication: B-CELL TYPE ACUTE LEUKAEMIA
     Dosage: FIRST DOSE
     Route: 042
     Dates: start: 20191112
  12. INCB18424 [Suspect]
     Active Substance: RUXOLITINIB
     Indication: B-CELL TYPE ACUTE LEUKAEMIA
     Dosage: FIRST DOSE
     Route: 048
     Dates: start: 20191008
  13. INCB18424 [Suspect]
     Active Substance: RUXOLITINIB
     Dosage: LAST DOSE PRIOR TO THE SAE FEBRILE NEUTROPENIA (SECOND OCCURRENCE)
     Route: 048
     Dates: start: 20191125, end: 20191125
  14. DEXAMETHASONE. [Suspect]
     Active Substance: DEXAMETHASONE
     Dosage: LAST DOSE PRIOR TO THE SAE FEBRILE NEUTROPENIA (SECOND OCCURRENCE)
     Route: 048
     Dates: start: 201911, end: 201911
  15. PEGASPARGASE [Suspect]
     Active Substance: PEGASPARGASE
     Dosage: LAST DOSE PRIOR TO SAE FEBRILE NEUTROPENIA (SECOND OCCURRENCE)
     Route: 042
     Dates: start: 20191126, end: 20191126
  16. VINCRISTINE [Suspect]
     Active Substance: VINCRISTINE
     Indication: B-CELL TYPE ACUTE LEUKAEMIA
     Dosage: FIRST DOSE
     Route: 042
     Dates: start: 20191008
  17. VINCRISTINE [Suspect]
     Active Substance: VINCRISTINE
     Dosage: LAST DOSE PRIOR TO SAE FEBRILE NEUTROPENIA (FIRST OCCURRENCE)
     Route: 042
     Dates: start: 20191022, end: 20191022
  18. CYTARABINE. [Suspect]
     Active Substance: CYTARABINE
     Dosage: LAST DOSE PRIOR TO THE SAE FEBRILE NEUTROPENIA (SECOND OCCURRENCE)
     Route: 042
     Dates: start: 20191122, end: 20191122
  19. DOXIL [Suspect]
     Active Substance: DOXORUBICIN HYDROCHLORIDE
     Indication: B-CELL TYPE ACUTE LEUKAEMIA
     Dosage: FIRST DOSE
     Route: 042
     Dates: start: 20191008
  20. DOXIL [Suspect]
     Active Substance: DOXORUBICIN HYDROCHLORIDE
     Dosage: LAST DOSE PRIOR TO THE SAE FEBRILE NEUTROPENIA (SECOND OCCURRENCE)
     Route: 042
     Dates: start: 201911, end: 201911
  21. CYCLOPHOSPHAMIDE FOR INJECTION, USP [Suspect]
     Active Substance: CYCLOPHOSPHAMIDE
     Dosage: LAST DOSE PRIOR TO SAE OF FEBRILE NEUTROPENIA (SECOND OCCURRENCE)
     Route: 042
     Dates: start: 20191126, end: 20191126
  22. PEGASPARGASE [Suspect]
     Active Substance: PEGASPARGASE
     Indication: B-CELL TYPE ACUTE LEUKAEMIA
     Dosage: FIRST DOSE AND LAST DOSE PRIOR TO SAE FEBRILE NEUTROPENIA (FIRST OCCURRENCE)
     Route: 042
     Dates: start: 20191011, end: 20191011
  23. THIOGUANINE [Suspect]
     Active Substance: THIOGUANINE
     Dosage: LAST DOSE PRIOR TO SAE FEBRILE NEUTROPENIA (SECOND OCCURRENCE)
     Route: 048
     Dates: start: 20191125, end: 20191125

REACTIONS (2)
  - Febrile neutropenia [Recovered/Resolved]
  - Febrile neutropenia [Recovered/Resolved]

NARRATIVE: CASE EVENT DATE: 20191030
